FAERS Safety Report 5047426-3 (Version None)
Quarter: 2006Q3

REPORT INFORMATION
  Report Type: 
  Country: None (occurrence: None)
  Receive Date: 20060710
  Receipt Date: 20060710
  Transmission Date: 20061208
  Serious: No
  Sender: FDA-Public Use
  Company Number: None

PATIENT
  Sex: Male
  Weight: 65 kg

DRUGS (12)
  1. ADALIMUMAB  40MG [Suspect]
     Indication: RHEUMATOID ARTHRITIS
     Dosage: 40MG EVERY 14 DAYS SQ
     Route: 058
     Dates: start: 20050120, end: 20060622
  2. METHOTREXATE [Suspect]
     Indication: RHEUMATOID ARTHRITIS
     Dosage: 15MG WEEKLY PO
     Route: 048
     Dates: start: 20040419, end: 20060404
  3. ALBUTEROL [Concomitant]
  4. CITALOPRAM [Concomitant]
  5. FLEXERIL [Concomitant]
  6. NASALIDE [Concomitant]
  7. GLYBURIDE [Concomitant]
  8. MAXZIDE [Concomitant]
  9. VICODIN [Concomitant]
  10. HYDROXYCHLOROQUINE [Concomitant]
  11. METFORMIN [Concomitant]
  12. PREDNISONE [Concomitant]

REACTIONS (9)
  - DIABETES MELLITUS NON-INSULIN-DEPENDENT [None]
  - IMMUNE SYSTEM DISORDER [None]
  - INFECTION [None]
  - ORAL CAVITY FISTULA [None]
  - OSTEONECROSIS [None]
  - SINUS PERFORATION [None]
  - SKIN EXFOLIATION [None]
  - SKIN GRAFT [None]
  - TOOTH DISORDER [None]
